FAERS Safety Report 16936320 (Version 2)
Quarter: 2019Q4

REPORT INFORMATION
  Report Type: Spontaneous
  Country: CO (occurrence: CO)
  Receive Date: 20191018
  Receipt Date: 20191108
  Transmission Date: 20200122
  Serious: Yes (Hospitalization)
  Sender: FDA-Public Use
  Company Number: CO-RECORDATI RARE DISEASES-2075823

PATIENT
  Age: 4 Year
  Sex: Female
  Weight: 11.7 kg

DRUGS (8)
  1. ESOMEPRAZOLE. [Concomitant]
     Active Substance: ESOMEPRAZOLE MAGNESIUM
     Route: 050
     Dates: start: 20141214
  2. SULZINC [Concomitant]
     Route: 050
     Dates: start: 20141214
  3. UNSPECIFIED CARGLUMIC ACID [Suspect]
     Active Substance: CARGLUMIC ACID
     Route: 050
     Dates: start: 20190928, end: 20191002
  4. DOMPERIDONE [Concomitant]
     Active Substance: DOMPERIDONE
     Route: 050
     Dates: start: 20141214
  5. L CARNITINE [Concomitant]
     Active Substance: LEVOCARNITINE
     Route: 050
     Dates: start: 20141214
  6. CARBAGLU [Suspect]
     Active Substance: CARGLUMIC ACID
     Indication: HYPERAMMONAEMIA
     Route: 050
     Dates: start: 20181229, end: 20190927
  7. BECLOMETASONE [Concomitant]
     Active Substance: BECLOMETHASONE DIPROPIONATE
     Route: 055
     Dates: start: 20141214
  8. CARBAMAZEPINE. [Concomitant]
     Active Substance: CARBAMAZEPINE
     Route: 050
     Dates: start: 20141214

REACTIONS (4)
  - Viral infection [Recovered/Resolved]
  - Crying [Recovered/Resolved]
  - Irritability [Recovered/Resolved]
  - Pain [Recovered/Resolved]

NARRATIVE: CASE EVENT DATE: 20190830
